FAERS Safety Report 10218246 (Version 1)
Quarter: 2014Q2

REPORT INFORMATION
  Report Type: Spontaneous
  Country: JP (occurrence: JP)
  Receive Date: 20140605
  Receipt Date: 20140605
  Transmission Date: 20141212
  Serious: Yes (Hospitalization)
  Sender: FDA-Public Use
  Company Number: JP-BRISTOL-MYERS SQUIBB COMPANY-20953287

PATIENT
  Age: 91 Year
  Sex: Female

DRUGS (1)
  1. WARFARIN SODIUM [Suspect]
     Dates: start: 20131212, end: 20140331

REACTIONS (1)
  - Pericardial effusion [Unknown]
